FAERS Safety Report 4860734-1 (Version None)
Quarter: 2005Q4

REPORT INFORMATION
  Report Type: 
  Country: None (occurrence: None)
  Receive Date: 20051220
  Receipt Date: 20051212
  Transmission Date: 20060501
  Serious: Yes (Hospitalization)
  Sender: FDA-Public Use
  Company Number: AU-SOLVAY-00205004209

PATIENT
  Age: 11692 Day
  Sex: Female
  Weight: 120 kg

DRUGS (3)
  1. COVERSYL [Suspect]
     Indication: ESSENTIAL HYPERTENSION
     Dosage: DAILY DOSE: 4 MILLIGRAM(S)
     Route: 048
     Dates: start: 20050804, end: 20050805
  2. CIPRAMIL [Suspect]
     Indication: DEPRESSION
     Dosage: DAILY DOSE: 20 MILLIGRAM(S)
     Route: 048
     Dates: start: 20050727, end: 20050810
  3. SEROQUEL [Suspect]
     Indication: DEPRESSION
     Dosage: DAILY DOSE: 100 MILLIGRAM(S)
     Route: 048
     Dates: start: 20050727, end: 20050811

REACTIONS (1)
  - ASTHMA [None]
